FAERS Safety Report 23362970 (Version 1)
Quarter: 2024Q1

REPORT INFORMATION
  Report Type: Spontaneous
  Country: US (occurrence: None)
  Receive Date: 20240103
  Receipt Date: 20240103
  Transmission Date: 20240410
  Serious: Yes (Hospitalization)
  Sender: FDA-Public Use
  Company Number: None

PATIENT
  Age: 75 Year
  Sex: Female
  Weight: 79.8 kg

DRUGS (3)
  1. TEFLARO [Suspect]
     Active Substance: CEFTAROLINE FOSAMIL
     Indication: Staphylococcal bacteraemia
     Dosage: FREQUENCY : 3 TIMES A DAY;?
     Route: 042
     Dates: start: 20231124, end: 20231226
  2. TEFLARO [Suspect]
     Active Substance: CEFTAROLINE FOSAMIL
     Indication: Osteomyelitis
  3. TEFLARO [Suspect]
     Active Substance: CEFTAROLINE FOSAMIL
     Indication: Intervertebral discitis

REACTIONS (6)
  - Type IV hypersensitivity reaction [None]
  - Leukopenia [None]
  - Neutropenia [None]
  - Eosinophil count increased [None]
  - Immune-mediated adverse reaction [None]
  - Drug reaction with eosinophilia and systemic symptoms [None]

NARRATIVE: CASE EVENT DATE: 20231226
